FAERS Safety Report 14034248 (Version 1)
Quarter: 2017Q4

REPORT INFORMATION
  Report Type: Spontaneous
  Country: US (occurrence: US)
  Receive Date: 20171003
  Receipt Date: 20171003
  Transmission Date: 20180321
  Serious: No
  Sender: FDA-Public Use
  Company Number: US-TEVA-801910ACC

PATIENT
  Age: 59 Year
  Sex: Female

DRUGS (1)
  1. CLONAZEPAM. [Suspect]
     Active Substance: CLONAZEPAM
     Indication: ANXIETY DISORDER

REACTIONS (9)
  - Heart rate increased [Unknown]
  - Nausea [Unknown]
  - Loss of personal independence in daily activities [Unknown]
  - Withdrawal syndrome [Unknown]
  - Tachyphrenia [Unknown]
  - Drug ineffective [Unknown]
  - Hyperhidrosis [Unknown]
  - Feeling jittery [Unknown]
  - Insomnia [Unknown]
